FAERS Safety Report 17694017 (Version 2)
Quarter: 2020Q2

REPORT INFORMATION
  Report Type: Spontaneous
  Country: IT (occurrence: IT)
  Receive Date: 20200422
  Receipt Date: 20200429
  Transmission Date: 20200714
  Serious: Yes (Hospitalization, Other)
  Sender: FDA-Public Use
  Company Number: IT-JNJFOC-20200419180

PATIENT
  Age: 62 Year
  Sex: Female

DRUGS (12)
  1. SUNITINIB [Concomitant]
     Active Substance: SUNITINIB
     Indication: CLEAR CELL RENAL CELL CARCINOMA
  2. DENOSUMAB [Concomitant]
     Active Substance: DENOSUMAB
     Indication: METASTASES TO BONE
  3. MORPHINE HYDROCHLORIDE [Suspect]
     Active Substance: MORPHINE HYDROCHLORIDE
     Dosage: INCREASED
     Route: 058
  4. PREGABALIN. [Concomitant]
     Active Substance: PREGABALIN
     Indication: NEURALGIA
     Route: 065
  5. DENOSUMAB [Concomitant]
     Active Substance: DENOSUMAB
     Indication: CLEAR CELL RENAL CELL CARCINOMA
     Route: 065
  6. FENTANYL CITRATE. [Suspect]
     Active Substance: FENTANYL CITRATE
     Indication: CANCER PAIN
     Dosage: RAPID-ONSET OPIOID; FOR A MAXIMUM OF 5 TABLETS/DAY
     Route: 002
  7. MORPHINE HYDROCHLORIDE [Suspect]
     Active Substance: MORPHINE HYDROCHLORIDE
     Indication: PAIN
     Dosage: INCREASED
     Route: 042
  8. MORPHINE HYDROCHLORIDE [Suspect]
     Active Substance: MORPHINE HYDROCHLORIDE
     Dosage: POSITIONING A CONTINUOUS SUBCUTANEOUS INFUSION OF MORPHINE HYDROCHLORIDE 30 MG/DAY FOR BACKGROUND PA
     Route: 058
  9. DUROGESIC [Suspect]
     Active Substance: FENTANYL
     Indication: PAIN
     Dosage: INCREASED
     Route: 062
  10. MORPHINE HYDROCHLORIDE [Suspect]
     Active Substance: MORPHINE HYDROCHLORIDE
     Indication: CANCER PAIN
     Dosage: MORPHINE HYDROCHLORIDE 5MG IV (1/6 OF THE BACKGROUND PAIN DOSE) FOR BTCP EPISODES.
     Route: 042
  11. SUNITINIB [Concomitant]
     Active Substance: SUNITINIB
     Indication: METASTASES TO BONE
     Route: 065
  12. DUROGESIC [Suspect]
     Active Substance: FENTANYL
     Route: 062

REACTIONS (1)
  - Drug dependence [Recovered/Resolved]
